FAERS Safety Report 23052085 (Version 6)
Quarter: 2023Q4

REPORT INFORMATION
  Report Type: Spontaneous
  Country: JP (occurrence: JP)
  Receive Date: 20231010
  Receipt Date: 20231121
  Transmission Date: 20240109
  Serious: Yes (Life-Threatening, Hospitalization, Other)
  Sender: FDA-Public Use
  Company Number: JP-Eisai-202306787_LEN-RCC_P_1

PATIENT
  Age: 77 Year
  Sex: Male
  Weight: 62 kg

DRUGS (11)
  1. LENVIMA [Suspect]
     Active Substance: LENVATINIB
     Indication: Metastatic renal cell carcinoma
     Route: 048
     Dates: start: 20230904
  2. LENVIMA [Suspect]
     Active Substance: LENVATINIB
     Route: 048
     Dates: start: 202309, end: 20230924
  3. KEYTRUDA [Suspect]
     Active Substance: PEMBROLIZUMAB
     Indication: Metastatic renal cell carcinoma
     Route: 042
     Dates: start: 20230904, end: 20230904
  4. LOXOPROFEN [Concomitant]
     Active Substance: LOXOPROFEN
     Indication: Product used for unknown indication
     Dosage: WITH MEALS
     Route: 048
  5. NIFEDIPINE [Concomitant]
     Active Substance: NIFEDIPINE
     Indication: Product used for unknown indication
     Dosage: WITH BREAKFAST
     Route: 048
  6. LOSARTAN POTASSIUM [Concomitant]
     Active Substance: LOSARTAN POTASSIUM
     Indication: Product used for unknown indication
     Dosage: WITH BREAKFAST
     Route: 048
  7. ROSUVASTATIN [Concomitant]
     Active Substance: ROSUVASTATIN
     Indication: Product used for unknown indication
     Dosage: WITH BREAKFAST
     Route: 048
  8. PREGABALIN [Concomitant]
     Active Substance: PREGABALIN
     Indication: Product used for unknown indication
     Dosage: WITH BREAKFAST/DINNER
     Route: 048
  9. REBAMIPIDE [Concomitant]
     Active Substance: REBAMIPIDE
     Indication: Product used for unknown indication
     Dosage: WITH MEALS
     Route: 048
  10. METHYLCOBALAMIN [Concomitant]
     Active Substance: METHYLCOBALAMIN
     Indication: Product used for unknown indication
     Dosage: WITH MEALS
     Route: 048
  11. MYONAL [Concomitant]
     Indication: Product used for unknown indication
     Dosage: WITH MEALS
     Route: 048

REACTIONS (15)
  - Movement disorder [Unknown]
  - Speech disorder [Not Recovered/Not Resolved]
  - Hypercapnia [Unknown]
  - Septic shock [Not Recovered/Not Resolved]
  - Pyrexia [Recovering/Resolving]
  - Small intestinal perforation [Not Recovered/Not Resolved]
  - Decreased appetite [Unknown]
  - Dysphonia [Recovered/Resolved]
  - Nausea [Unknown]
  - Hypertension [Recovering/Resolving]
  - Fall [Unknown]
  - Platelet count decreased [Unknown]
  - White blood cell count decreased [Unknown]
  - Diarrhoea [Unknown]
  - Thirst [Unknown]

NARRATIVE: CASE EVENT DATE: 20230101
